FAERS Safety Report 4431808-4 (Version None)
Quarter: 2004Q3

REPORT INFORMATION
  Report Type: 
  Country: None (occurrence: None)
  Receive Date: 20040825
  Receipt Date: 20040818
  Transmission Date: 20050211
  Serious: Yes (Hospitalization)
  Sender: FDA-Public Use
  Company Number: 200416282US

PATIENT
  Sex: Male
  Weight: 11 kg

DRUGS (5)
  1. LASIX [Suspect]
     Dosage: DOSE: UNK
     Dates: start: 20040715
  2. CYTOVENE [Suspect]
     Route: 042
     Dates: start: 20040718, end: 20040726
  3. SPIRONOLACTONE [Suspect]
     Indication: CARDIOMYOPATHY
     Dosage: DOSE: UNK
  4. COREG [Concomitant]
     Dosage: DOSE: UNK
  5. DIGITALIS [Concomitant]
     Dosage: DOSE: UNK

REACTIONS (6)
  - DEHYDRATION [None]
  - DRUG INEFFECTIVE [None]
  - IATROGENIC INJURY [None]
  - OVERDOSE [None]
  - PNEUMONIA [None]
  - RENAL FAILURE [None]
